FAERS Safety Report 4842895-3 (Version None)
Quarter: 2005Q4

REPORT INFORMATION
  Report Type: 
  Country: None (occurrence: None)
  Receive Date: 20051129
  Receipt Date: 20051111
  Transmission Date: 20060501
  Serious: Yes (Death, Hospitalization)
  Sender: FDA-Public Use
  Company Number: 032-48

PATIENT
  Age: 88 Year
  Sex: Female

DRUGS (10)
  1. TEVETEN [Suspect]
     Indication: HYPERTENSION
     Dosage: 600 MG PO
     Route: 048
     Dates: start: 20040817, end: 20040928
  2. PLAVIX [Concomitant]
  3. ASPIRIN [Concomitant]
  4. DILTIAZEM HCL [Concomitant]
  5. ZOLOFT     /USA/ [Concomitant]
  6. HYDROXOCOBALAMIN [Concomitant]
  7. FOSAMAX /ITA/ [Concomitant]
  8. LANSOPRAZOLE [Concomitant]
  9. CALCIUM/VITAMIN D [Concomitant]
  10. GLUCOVANCE [Concomitant]

REACTIONS (3)
  - BLOOD PRESSURE SYSTOLIC INCREASED [None]
  - HAEMATURIA [None]
  - PNEUMONIA [None]
